FAERS Safety Report 26021462 (Version 1)
Quarter: 2025Q4

REPORT INFORMATION
  Report Type: Spontaneous
  Country: US (occurrence: None)
  Receive Date: 20251110
  Receipt Date: 20251110
  Transmission Date: 20260118
  Serious: Yes (Hospitalization)
  Sender: FDA-CTU
  Company Number: None

PATIENT
  Sex: Female

DRUGS (9)
  1. GAMMAGARD S/D [Suspect]
     Active Substance: HUMAN IMMUNOGLOBULIN G
     Indication: Immunodeficiency common variable
     Dosage: 40 G GRAM(S) EVERY 3 WEEKS INTRAVENOUS?
     Route: 042
     Dates: start: 20250523
  2. SOLU MEDROL SDV (1ML/A-O-V) [Concomitant]
  3. HEPARIN L/L FLUSH SYR (5ML) [Concomitant]
  4. ACETAMINOPHEN XS [Concomitant]
  5. SOLU MEDROL SDV ACT-O-VIAL [Concomitant]
  6. SODIUM CHLOR POSIFLUSH (10ML) [Concomitant]
  7. SODIUM CHLOR (500ML/BAG) [Concomitant]
  8. DIPHENHYDRAMINE [Concomitant]
     Active Substance: DIPHENHYDRAMINE
  9. SODIUM CHLOR INJ (1000ML/BAG) [Concomitant]

REACTIONS (1)
  - Clostridium difficile infection [None]
